FAERS Safety Report 19396944 (Version 3)
Quarter: 2024Q1

REPORT INFORMATION
  Report Type: Report from Study
  Country: AT (occurrence: AT)
  Receive Date: 20210610
  Receipt Date: 20240220
  Transmission Date: 20240410
  Serious: Yes (Hospitalization)
  Sender: FDA-Public Use
  Company Number: AT-ROCHE-2777644

PATIENT
  Age: 42 Year
  Sex: Female
  Weight: 60 kg

DRUGS (61)
  1. LEUPROLIDE ACETATE [Suspect]
     Active Substance: ISOPROPYL ALCOHOL\LEUPROLIDE ACETATE
     Indication: Breast cancer
     Dosage: 11.25 MILLIGRAM, Q3MONTHS
     Route: 058
     Dates: start: 201804, end: 20200225
  2. LEUPROLIDE ACETATE [Suspect]
     Active Substance: ISOPROPYL ALCOHOL\LEUPROLIDE ACETATE
     Indication: HER2 positive breast cancer
  3. KADCYLA [Suspect]
     Active Substance: ADO-TRASTUZUMAB EMTANSINE
     Indication: Breast cancer
     Dosage: UNK UNK, Q4WEEKS
     Route: 042
     Dates: start: 20161114, end: 20170522
  4. KADCYLA [Suspect]
     Active Substance: ADO-TRASTUZUMAB EMTANSINE
     Indication: Breast cancer
     Dosage: UNK UNK, Q4WEEKS
     Route: 042
     Dates: start: 20170821, end: 20171120
  5. KADCYLA [Suspect]
     Active Substance: ADO-TRASTUZUMAB EMTANSINE
     Indication: Breast cancer
     Route: 065
  6. KADCYLA [Suspect]
     Active Substance: ADO-TRASTUZUMAB EMTANSINE
     Indication: Breast cancer
     Dosage: UNK UNK, Q3WEEKS
     Route: 042
     Dates: start: 20161114, end: 20170424
  7. VENLAFAXINE HYDROCHLORIDE [Concomitant]
     Active Substance: VENLAFAXINE HYDROCHLORIDE
     Indication: Product used for unknown indication
     Dosage: 75 MILLIGRAM, QD
     Dates: start: 20190228
  8. PERTUZUMAB [Suspect]
     Active Substance: PERTUZUMAB
     Indication: Breast cancer
     Dosage: 420 MILLIGRAM, Q3WEEKS
     Route: 042
     Dates: start: 201811, end: 201811
  9. PERTUZUMAB [Suspect]
     Active Substance: PERTUZUMAB
     Indication: Breast cancer
     Dosage: 840 MILLIGRAM, Q3WEEKS
     Route: 042
     Dates: start: 20181122, end: 20181122
  10. DENOSUMAB [Concomitant]
     Active Substance: DENOSUMAB
     Indication: Product used for unknown indication
     Dosage: UNK
  11. Xiclav [Concomitant]
     Indication: Product used for unknown indication
     Dosage: 1 GRAM, BID
     Dates: start: 20181113, end: 20181120
  12. LETROZOLE [Suspect]
     Active Substance: LETROZOLE
     Indication: Breast cancer
     Dosage: 2.5 MILLIGRAM, QD
     Route: 048
     Dates: start: 20180426
  13. MORPHINE [Concomitant]
     Active Substance: MORPHINE
     Indication: General physical health deterioration
     Dosage: 5 MILLIGRAM
     Dates: start: 20200225, end: 20200417
  14. MORPHINE [Concomitant]
     Active Substance: MORPHINE
     Indication: General physical health deterioration
     Dosage: UNK
     Dates: start: 20200225, end: 20200417
  15. MORPHINE [Concomitant]
     Active Substance: MORPHINE
     Indication: General physical health deterioration
     Dosage: 10 MILLIGRAM, QD
     Dates: start: 20170530, end: 20200417
  16. DICLOFENAC SODIUM\ORPHENADRINE CITRATE [Concomitant]
     Active Substance: DICLOFENAC SODIUM\ORPHENADRINE CITRATE
     Indication: Product used for unknown indication
     Dosage: 250 MILLILITER, QD
     Dates: start: 20181112, end: 20181113
  17. DICLOFENAC SODIUM\ORPHENADRINE CITRATE [Concomitant]
     Active Substance: DICLOFENAC SODIUM\ORPHENADRINE CITRATE
     Indication: Product used for unknown indication
     Dosage: 250 MILLILITER, QD
     Dates: start: 20181115, end: 20181116
  18. ADO-TRASTUZUMAB EMTANSINE [Suspect]
     Active Substance: ADO-TRASTUZUMAB EMTANSINE
     Indication: Breast cancer
     Dosage: 3.6 MILLIGRAM/KILOGRAM, Q4WEEKS
     Route: 042
     Dates: start: 20161114, end: 20170522
  19. DENOSUMAB [Suspect]
     Active Substance: DENOSUMAB
     Indication: Breast cancer
     Dosage: 120 MILLIGRAM, MONTHLY
     Route: 058
     Dates: start: 201611, end: 20181129
  20. PERJETA [Suspect]
     Active Substance: PERTUZUMAB
     Indication: Breast cancer
     Dosage: 840 MILLIGRAM, Q3WEEKS
     Route: 042
     Dates: start: 20181122, end: 20181122
  21. PERJETA [Suspect]
     Active Substance: PERTUZUMAB
     Indication: Breast cancer
     Dosage: 420 MILLIGRAM, Q3WEEKS
     Route: 042
     Dates: start: 201811
  22. PERJETA [Suspect]
     Active Substance: PERTUZUMAB
     Indication: Breast cancer
     Dosage: 840 MILLIGRAM, Q3WEEKS
     Route: 042
     Dates: start: 20181213, end: 20190502
  23. XGEVA [Concomitant]
     Active Substance: DENOSUMAB
     Indication: Product used for unknown indication
     Dosage: 120 MILLIGRAM, MONTHLY
     Dates: start: 2016, end: 20181129
  24. XGEVA [Concomitant]
     Active Substance: DENOSUMAB
     Indication: Product used for unknown indication
     Dosage: 120 MILLIGRAM, MONTHLY
     Dates: start: 20190319, end: 201904
  25. TRASTUZUMAB [Suspect]
     Active Substance: TRASTUZUMAB
     Indication: Breast cancer
     Dosage: 600 MILLIGRAM, Q3WEEKS
     Route: 042
     Dates: start: 20180503
  26. HERCEPTIN [Suspect]
     Active Substance: TRASTUZUMAB
     Indication: Breast cancer
     Dosage: 600 MILLIGRAM, Q3WEEKS
     Route: 058
     Dates: start: 20180503, end: 20190502
  27. HERCEPTIN [Suspect]
     Active Substance: TRASTUZUMAB
     Indication: Breast cancer
     Dosage: 600 MILLIGRAM, Q3WEEKS
     Route: 058
     Dates: start: 20190509, end: 20191227
  28. HERCEPTIN [Suspect]
     Active Substance: TRASTUZUMAB
     Indication: Breast cancer
     Route: 058
  29. AMOXICILLIN [Concomitant]
     Active Substance: AMOXICILLIN
     Indication: Product used for unknown indication
     Dosage: UNK
     Dates: start: 201904, end: 201904
  30. LAFENE [Concomitant]
     Indication: Spinal pain
     Dosage: 12 MICROGRAM
     Dates: start: 20181113
  31. LAFENE [Concomitant]
     Indication: Spinal pain
     Dosage: UNK
     Dates: start: 20200225, end: 20200417
  32. LAFENE [Concomitant]
     Indication: Spinal pain
     Dosage: 12 MICROGRAM
     Dates: start: 20190421, end: 20200224
  33. LAFENE [Concomitant]
     Indication: Spinal pain
     Dosage: UNK
     Dates: start: 20190421, end: 20200224
  34. LAFENE [Concomitant]
     Indication: Spinal pain
     Dosage: 25 MICROGRAM
     Dates: start: 20200225, end: 20200417
  35. ZOFRAN [Concomitant]
     Active Substance: ONDANSETRON HYDROCHLORIDE
     Indication: Vomiting
     Dosage: UNK, UNK, QD
     Dates: start: 20200228, end: 20200228
  36. ACETAMINOPHEN [Concomitant]
     Active Substance: ACETAMINOPHEN
     Indication: Metastases to central nervous system
     Dosage: 500 MILLIGRAM
     Dates: start: 20170609, end: 20200417
  37. ACETAMINOPHEN [Concomitant]
     Active Substance: ACETAMINOPHEN
     Indication: Metastases to central nervous system
     Dosage: UNK
     Dates: start: 20170609, end: 20200417
  38. ACETAMINOPHEN [Concomitant]
     Active Substance: ACETAMINOPHEN
     Indication: Nausea
     Dosage: 1000 MILLIGRAM, QD
     Dates: start: 20200228, end: 20200228
  39. ACETAMINOPHEN [Concomitant]
     Active Substance: ACETAMINOPHEN
     Indication: Nausea
     Dosage: UNK
     Dates: start: 20200228, end: 20200228
  40. FRAGMIN [Concomitant]
     Active Substance: DALTEPARIN SODIUM
     Indication: Product used for unknown indication
     Dosage: UNK, QD
     Dates: start: 20200228, end: 20200311
  41. Miranax [Concomitant]
     Indication: Product used for unknown indication
     Dosage: UNK
     Dates: start: 20161115, end: 20200417
  42. POLYETHYLENE GLYCOL 3350\POTASSIUM CHLORIDE\SODIUM BICARBONATE\SODIUM [Concomitant]
     Active Substance: POLYETHYLENE GLYCOL 3350\POTASSIUM CHLORIDE\SODIUM BICARBONATE\SODIUM CHLORIDE
     Indication: Vomiting
     Dosage: 13.8 GRAM, BID
     Dates: start: 20200306, end: 20200311
  43. ZOFRAN [Concomitant]
     Active Substance: ONDANSETRON HYDROCHLORIDE
     Indication: Product used for unknown indication
     Dosage: UNK
     Dates: start: 20161115, end: 20200417
  44. MORPHINE [Concomitant]
     Active Substance: MORPHINE
     Indication: General physical health deterioration
     Dosage: UNK
     Dates: start: 20200225, end: 20200417
  45. ZOLPIDEM [Concomitant]
     Active Substance: ZOLPIDEM TARTRATE
     Indication: Vomiting
     Dosage: 10 MILLIGRAM
     Dates: start: 20200228, end: 20200417
  46. Novalgin [Concomitant]
     Indication: Product used for unknown indication
     Dosage: UNK
     Dates: start: 20181112, end: 20181116
  47. Novalgin [Concomitant]
     Indication: Product used for unknown indication
     Dosage: UNK
     Dates: start: 20181117, end: 20200417
  48. EMEND [Concomitant]
     Active Substance: APREPITANT
     Indication: Product used for unknown indication
     Dosage: 80 MILLIGRAM
     Dates: start: 20161115, end: 20200417
  49. EMEND [Concomitant]
     Active Substance: APREPITANT
     Indication: Product used for unknown indication
     Dosage: UNK
     Dates: start: 20161115, end: 20200417
  50. DEXAMETHASONE [Concomitant]
     Active Substance: DEXAMETHASONE
     Indication: Vomiting
     Dosage: 40 MILLIGRAM, QD
     Dates: start: 20200530, end: 20200530
  51. DEXAMETHASONE [Concomitant]
     Active Substance: DEXAMETHASONE
     Indication: Vomiting
     Dosage: UNK
     Dates: start: 20200303, end: 20200309
  52. DEXAMETHASONE [Concomitant]
     Active Substance: DEXAMETHASONE
     Indication: Vomiting
     Dosage: 40 MILLIGRAM, QD
     Dates: start: 20200229, end: 20200302
  53. DEXAMETHASONE [Concomitant]
     Active Substance: DEXAMETHASONE
     Indication: Vomiting
     Dosage: UNK
     Dates: start: 20170330, end: 20200417
  54. DEXAMETHASONE [Concomitant]
     Active Substance: DEXAMETHASONE
     Indication: Vomiting
     Dosage: 4 MILLIGRAM, QD
     Dates: start: 20200303, end: 20200309
  55. DEXAMETHASONE [Concomitant]
     Active Substance: DEXAMETHASONE
     Indication: Vomiting
     Dosage: UNK
     Dates: start: 20200229, end: 20200302
  56. DEXAMETHASONE [Concomitant]
     Active Substance: DEXAMETHASONE
     Indication: Vomiting
     Dosage: 8 MILLIGRAM, BID
     Dates: start: 20170330, end: 20200417
  57. LYRICA [Concomitant]
     Active Substance: PREGABALIN
     Indication: General physical health deterioration
     Dosage: 75 MILLIGRAM, BID
     Dates: start: 20200225, end: 20200417
  58. MEFENAMIC ACID [Concomitant]
     Active Substance: MEFENAMIC ACID
     Indication: Product used for unknown indication
     Dosage: 500 MILLIGRAM
     Dates: start: 20170315, end: 20200417
  59. MEFENAMIC ACID [Concomitant]
     Active Substance: MEFENAMIC ACID
     Indication: Product used for unknown indication
     Dosage: UNK
     Route: 065
     Dates: start: 20170315, end: 20200417
  60. MEFENAMIC ACID [Concomitant]
     Active Substance: MEFENAMIC ACID
     Indication: Product used for unknown indication
     Dosage: TIME INTERVAL: 0.33333333 DAYS: 500 MILLIGRAM, TID
     Dates: start: 20181113, end: 20181120
  61. FEMARA [Suspect]
     Active Substance: LETROZOLE
     Indication: Breast cancer
     Dosage: 2.5 MILLIGRAM, QD
     Route: 048
     Dates: start: 20180426, end: 20200225

REACTIONS (2)
  - Post herpetic neuralgia [Not Recovered/Not Resolved]
  - Pain in extremity [Not Recovered/Not Resolved]

NARRATIVE: CASE EVENT DATE: 20200225
